FAERS Safety Report 22265293 (Version 2)
Quarter: 2023Q2

REPORT INFORMATION
  Report Type: Spontaneous
  Country: FR (occurrence: FR)
  Receive Date: 20230428
  Receipt Date: 20230503
  Transmission Date: 20230722
  Serious: Yes (Other)
  Sender: FDA-Public Use
  Company Number: None

PATIENT
  Age: 74 Year
  Sex: Male
  Weight: 67.2 kg

DRUGS (15)
  1. ETOPOSIDE [Suspect]
     Active Substance: ETOPOSIDE
     Dosage: UNK
     Route: 065
     Dates: start: 20220610
  2. IFOSFAMIDE [Suspect]
     Active Substance: IFOSFAMIDE
     Indication: Cutaneous T-cell lymphoma
     Dosage: 1500 MG/M2, 1 X TOTAL, C14
     Route: 042
     Dates: start: 20230405, end: 20230405
  3. IFOSFAMIDE [Suspect]
     Active Substance: IFOSFAMIDE
     Dosage: 1500 MG/M2, 1 X TOTAL, C13
     Route: 042
     Dates: start: 20230314, end: 20230314
  4. IFOSFAMIDE [Suspect]
     Active Substance: IFOSFAMIDE
     Dosage: 1500 MG/M2, EVERY TWO TO THREE WEEKS
     Route: 065
     Dates: start: 20220610
  5. DOXORUBICIN [Suspect]
     Active Substance: DOXORUBICIN
     Dosage: UNK
     Route: 065
     Dates: start: 20201026, end: 20220524
  6. ELIQUIS [Concomitant]
     Active Substance: APIXABAN
     Indication: Atrial fibrillation
     Dosage: 5 MG, EVERY 12 HOURS
     Route: 048
  7. ETOPOSIDE [Concomitant]
     Active Substance: ETOPOSIDE
     Indication: Cutaneous T-cell lymphoma
     Dosage: 150 MG/M2, 1 X TOTAL, C13
     Route: 042
     Dates: start: 20230314, end: 20230314
  8. ETOPOSIDE [Concomitant]
     Active Substance: ETOPOSIDE
     Dosage: 150 MG/M2, 1 X TOTAL, C14
     Route: 042
     Dates: start: 20230405, end: 20230405
  9. MESNA [Concomitant]
     Active Substance: MESNA
     Indication: Chemotherapy side effect prophylaxis
     Dosage: 500 MG/M2, EVERY 4 HOURS, C14 - H0-H4-H8
     Route: 042
     Dates: start: 20230405, end: 20230405
  10. MESNA [Concomitant]
     Active Substance: MESNA
     Dosage: 500 MG/M2, EVERY 4 HOURS, C13 - H0-H4-H8
     Route: 042
     Dates: start: 20230314, end: 20230314
  11. LEVOTHYROXINE [Concomitant]
     Active Substance: LEVOTHYROXINE
     Indication: Hypothyroidism
     Dosage: 50 UG, QD, DOSAGE FORM: SCORED TABLET
     Route: 048
  12. AMLODIPINE [Concomitant]
     Active Substance: AMLODIPINE BESYLATE
     Dosage: 5 MG, QD
     Route: 048
  13. RAMIPRIL [Concomitant]
     Active Substance: RAMIPRIL
     Dosage: 5 MG, EVERY 12 HOURS
     Route: 048
  14. AMIODARONE [Concomitant]
     Active Substance: AMIODARONE
     Indication: Atrial fibrillation
     Dosage: 200 MG, QD
     Route: 048
  15. TAMSULOSIN HYDROCHLORIDE [Concomitant]
     Active Substance: TAMSULOSIN HYDROCHLORIDE
     Indication: Benign prostatic hyperplasia
     Dosage: 0.4 MG, QD
     Route: 048

REACTIONS (3)
  - Hot flush [Recovered/Resolved]
  - Syncope [Recovered/Resolved]
  - Hypotension [Recovered/Resolved]

NARRATIVE: CASE EVENT DATE: 20230314
